FAERS Safety Report 23685023 (Version 1)
Quarter: 2024Q1

REPORT INFORMATION
  Report Type: Report from Study
  Country: DE (occurrence: DE)
  Receive Date: 20240328
  Receipt Date: 20240328
  Transmission Date: 20240410
  Serious: Yes (Other)
  Sender: FDA-Public Use
  Company Number: DE-PFM-2024-01772

PATIENT
  Sex: Female
  Weight: 79 kg

DRUGS (4)
  1. BRAFTOVI [Suspect]
     Active Substance: ENCORAFENIB
     Indication: Colorectal cancer
     Dosage: 300 MG, DAILY
     Route: 048
     Dates: start: 20240111, end: 20240221
  2. CETUXIMAB [Suspect]
     Active Substance: CETUXIMAB
     Indication: Colorectal cancer
     Dosage: 250 MG/M2, WEEKLY
     Route: 042
     Dates: start: 20240111, end: 20240221
  3. METAMIZOLE [Concomitant]
     Active Substance: METAMIZOLE
     Indication: Diagnostic procedure
     Dosage: 500 MG, PRN
     Route: 048
     Dates: start: 20240118
  4. ZOPICLONE [Concomitant]
     Active Substance: ZOPICLONE
     Indication: Diagnostic procedure
     Dosage: 3.75 MG, DAILY
     Route: 048
     Dates: start: 20240125, end: 20240207

REACTIONS (2)
  - Carcinoembryonic antigen increased [Not Recovered/Not Resolved]
  - Carbohydrate antigen 19-9 increased [Not Recovered/Not Resolved]

NARRATIVE: CASE EVENT DATE: 20240314
